FAERS Safety Report 16045947 (Version 1)
Quarter: 2019Q1

REPORT INFORMATION
  Report Type: Spontaneous
  Country: US (occurrence: US)
  Receive Date: 20190307
  Receipt Date: 20190307
  Transmission Date: 20190418
  Serious: No
  Sender: FDA-Public Use
  Company Number: US-IPSEN BIOPHARMACEUTICALS, INC.-2019-03002

PATIENT
  Sex: Female
  Weight: 70.3 kg

DRUGS (18)
  1. SOMATULINE [Suspect]
     Active Substance: LANREOTIDE ACETATE
     Route: 058
     Dates: start: 2016
  2. ALBUTEROL. [Concomitant]
     Active Substance: ALBUTEROL
     Indication: DYSPNOEA
     Dosage: (PROAIR HFA) 108 (90 BASE) MCG/ACT INHALER: INHALE 2 PUFFS EVERY 4 HOURS AS NEEDED
  3. ALBUTEROL. [Concomitant]
     Active Substance: ALBUTEROL
     Indication: WHEEZING
  4. NICOTINE. [Concomitant]
     Active Substance: NICOTINE
     Dosage: (NICODERM CQ) 21MG/24 HOUR: PLACE ONE PATCH ON THE SKIN
  5. OMEPRAZOLE. [Concomitant]
     Active Substance: OMEPRAZOLE
     Route: 048
  6. METOPROLOL TARTRATE. [Concomitant]
     Active Substance: METOPROLOL TARTRATE
     Dosage: 2 TABLETS
     Route: 048
  7. AMLODIPINE [Concomitant]
     Active Substance: AMLODIPINE BESYLATE
     Dosage: 1 TABLET
     Route: 048
  8. METHOCARBAMOL. [Concomitant]
     Active Substance: METHOCARBAMOL
     Indication: MUSCLE SPASMS
  9. RIVAROXABAN [Concomitant]
     Active Substance: RIVAROXABAN
     Dosage: WITH DINNER
     Route: 048
  10. SALINE [Concomitant]
     Active Substance: SODIUM CHLORIDE
     Dosage: 1 SPRAY IN THE NOSTRIL
     Route: 045
  11. PEGVISOMANT [Concomitant]
     Active Substance: PEGVISOMANT
  12. SOMAVERT [Concomitant]
     Active Substance: PEGVISOMANT
     Dosage: INJECT UNDER THE SKIN
     Route: 058
  13. ESTROGENS CONJUGATED [Concomitant]
     Active Substance: ESTROGENS, CONJUGATED
     Dosage: 1 APPLICATION INTO VAGINA 2 TIMES A WEEK
     Route: 067
  14. FLECAINIDE [Concomitant]
     Active Substance: FLECAINIDE
     Route: 048
  15. FLUTICANOSE [Concomitant]
     Dosage: 50 MCG/ACT (2 SPRAYS INTO BOTH NOSTRILS)
     Route: 045
  16. MONTELUKAST [Concomitant]
     Active Substance: MONTELUKAST SODIUM
     Dosage: 1 TABLET AT BEDTIME
     Route: 048
  17. TRAMADOL. [Concomitant]
     Active Substance: TRAMADOL
     Indication: PAIN
     Dosage: 1 TABLET AS NEEDED
     Route: 048
  18. SOMATULINE [Suspect]
     Active Substance: LANREOTIDE ACETATE
     Indication: ACROMEGALY
     Route: 058
     Dates: start: 2015

REACTIONS (2)
  - Eye pain [Unknown]
  - Headache [Not Recovered/Not Resolved]
